FAERS Safety Report 7221395-X (Version None)
Quarter: 2011Q1

REPORT INFORMATION
  Report Type: 
  Country: None (occurrence: None)
  Receive Date: 20110112
  Receipt Date: 20110104
  Transmission Date: 20110831
  Serious: Yes (Hospitalization)
  Sender: FDA-Public Use
  Company Number: BR-MEDIMMUNE-MEDI-0012166

PATIENT
  Sex: Female
  Weight: 9 kg

DRUGS (2)
  1. SYNAGIS [Suspect]
     Route: 030
     Dates: end: 20100101
  2. SYNAGIS [Suspect]
     Indication: BRONCHOPULMONARY DYSPLASIA

REACTIONS (3)
  - NASOPHARYNGITIS [None]
  - BRONCHIOLITIS [None]
  - COUGH [None]
